FAERS Safety Report 4968437-X (Version None)
Quarter: 2006Q2

REPORT INFORMATION
  Report Type: 
  Country: None (occurrence: None)
  Receive Date: 20060410
  Receipt Date: 20060217
  Transmission Date: 20061013
  Serious: Yes (Hospitalization)
  Sender: FDA-Public Use
  Company Number: PR-MERCK-0602USA04830

PATIENT
  Age: 60 Year
  Sex: Male
  Weight: 84 kg

DRUGS (2)
  1. VIOXX [Suspect]
     Indication: BACK PAIN
     Route: 048
     Dates: start: 20011001, end: 20040901
  2. VIOXX [Suspect]
     Indication: TOOTHACHE
     Route: 048
     Dates: start: 20011001, end: 20040901

REACTIONS (26)
  - ABDOMINAL PAIN UPPER [None]
  - CALCINOSIS [None]
  - CHOLELITHIASIS [None]
  - CONDITION AGGRAVATED [None]
  - DEPRESSION [None]
  - DIABETES MELLITUS NON-INSULIN-DEPENDENT [None]
  - DIVERTICULUM [None]
  - DIZZINESS [None]
  - EMOTIONAL DISORDER [None]
  - EYE DISORDER [None]
  - EYE HAEMORRHAGE [None]
  - FACIAL PALSY [None]
  - GASTRITIS [None]
  - GRANULOMATOUS LIVER DISEASE [None]
  - HAEMORRHOIDS [None]
  - HEADACHE [None]
  - HEPATIC MASS [None]
  - HYPERTENSION [None]
  - JOINT INJURY [None]
  - LIMB INJURY [None]
  - LIVER DISORDER [None]
  - OSTEOARTHRITIS [None]
  - OSTEOPOROSIS [None]
  - PELVIC PAIN [None]
  - PRESCRIBED OVERDOSE [None]
  - ROAD TRAFFIC ACCIDENT [None]
